FAERS Safety Report 18092046 (Version 1)
Quarter: 2020Q3

REPORT INFORMATION
  Report Type: Spontaneous
  Country: US (occurrence: US)
  Receive Date: 20200730
  Receipt Date: 20200730
  Transmission Date: 20201103
  Serious: Yes (Other)
  Sender: FDA-Public Use
  Company Number: None

PATIENT
  Age: 67 Year
  Sex: Male
  Weight: 71.1 kg

DRUGS (5)
  1. ZONISAMIDE. [Concomitant]
     Active Substance: ZONISAMIDE
  2. AMLODIPINE BESYLATE. [Concomitant]
     Active Substance: AMLODIPINE BESYLATE
  3. CIPROFLOXACIN HCL 500 MG [Suspect]
     Active Substance: CIPROFLOXACIN HYDROCHLORIDE
     Indication: MEMORY IMPAIRMENT
     Dosage: ?          QUANTITY:1 TABLET(S);?
     Route: 048
     Dates: start: 20200217, end: 20200226
  4. OXYCODONE [Concomitant]
     Active Substance: OXYCODONE
  5. LORATADINE. [Concomitant]
     Active Substance: LORATADINE

REACTIONS (5)
  - Gait inability [None]
  - Arthritis [None]
  - Pain [None]
  - Arthropathy [None]
  - Gait disturbance [None]

NARRATIVE: CASE EVENT DATE: 20200222
